FAERS Safety Report 9581001 (Version 2)
Quarter: 2013Q4

REPORT INFORMATION
  Report Type: Report from Study
  Country: US (occurrence: US)
  Receive Date: 20131002
  Receipt Date: 20131011
  Transmission Date: 20140711
  Serious: Yes (Hospitalization, Other)
  Sender: FDA-Public Use
  Company Number: US-ABBVIE-13P-163-1152091-00

PATIENT
  Age: 65 Year
  Sex: Female
  Weight: 53.57 kg

DRUGS (14)
  1. HUMIRA [Suspect]
     Indication: RHEUMATOID ARTHRITIS
     Route: 058
     Dates: start: 2008
  2. HUMIRA [Suspect]
     Route: 058
     Dates: end: 201309
  3. ALENDRONATE SODIUM [Concomitant]
     Indication: PRODUCT USED FOR UNKNOWN INDICATION
  4. ENOXAPARIN [Concomitant]
     Indication: PRODUCT USED FOR UNKNOWN INDICATION
  5. CITALOPRAM [Concomitant]
     Indication: DEPRESSION
  6. PREDNISONE [Concomitant]
     Indication: RHEUMATOID ARTHRITIS
  7. GABAPENTIN [Concomitant]
     Indication: NERVE INJURY
  8. ONDANSETRON [Concomitant]
     Indication: PRODUCT USED FOR UNKNOWN INDICATION
  9. POLYETHYLENE GLYCOL [Concomitant]
     Indication: PRODUCT USED FOR UNKNOWN INDICATION
  10. AMBIEN [Concomitant]
     Indication: INSOMNIA
  11. IBUPROFEN [Concomitant]
     Indication: INFLAMMATION
  12. PRILOSEC [Concomitant]
     Indication: GASTRIC DISORDER
  13. PRILOSEC [Concomitant]
     Indication: PROPHYLAXIS
  14. CALCIUM [Concomitant]
     Indication: BONE DISORDER

REACTIONS (13)
  - Haemangioma of liver [Recovered/Resolved]
  - Full blood count decreased [Recovered/Resolved]
  - Pyrexia [Recovered/Resolved]
  - Faeces pale [Unknown]
  - Nausea [Recovered/Resolved]
  - Vomiting [Recovered/Resolved]
  - Fatigue [Recovered/Resolved]
  - Weight decreased [Unknown]
  - Abdominal pain [Recovered/Resolved]
  - Splenic artery aneurysm [Not Recovered/Not Resolved]
  - Hepatic cyst [Recovered/Resolved]
  - Cholelithiasis [Recovered/Resolved]
  - Cholecystitis [Recovered/Resolved]
